FAERS Safety Report 6931182-5 (Version None)
Quarter: 2010Q3

REPORT INFORMATION
  Report Type: 
  Country: None (occurrence: None)
  Receive Date: 20100818
  Receipt Date: 20100812
  Transmission Date: 20110219
  Serious: Yes (Hospitalization)
  Sender: FDA-Public Use
  Company Number: US-MERCK-1008USA01529

PATIENT
  Sex: Male

DRUGS (5)
  1. JANUMET [Suspect]
     Indication: DIABETES MELLITUS
     Route: 048
     Dates: start: 20080101, end: 20100809
  2. INSULIN HUMAN, ISOPHANE [Concomitant]
     Dosage: PM
     Route: 065
  3. LISINOPRIL [Concomitant]
     Route: 065
  4. PEPCID [Concomitant]
     Route: 048
  5. SIMVASTATIN [Concomitant]
     Route: 065

REACTIONS (1)
  - PANCREATIC CARCINOMA [None]
